FAERS Safety Report 20173820 (Version 3)
Quarter: 2021Q4

REPORT INFORMATION
  Report Type: Spontaneous
  Country: JP (occurrence: JP)
  Receive Date: 20211213
  Receipt Date: 20211230
  Transmission Date: 20220303
  Serious: Yes (Other)
  Sender: FDA-Public Use
  Company Number: JP-AMGEN-JPNSP2021154335

PATIENT
  Age: 70 Year
  Sex: Female
  Weight: 50 kg

DRUGS (2)
  1. EVENITY [Suspect]
     Active Substance: ROMOSOZUMAB-AQQG
     Indication: Osteoporosis
     Dosage: 105 MILLIGRAM, QMO
     Route: 058
     Dates: start: 20210830
  2. ALFACALCIDOL [Concomitant]
     Active Substance: ALFACALCIDOL
     Dosage: 1 MICROGRAM, QD
     Dates: start: 20210830

REACTIONS (4)
  - Dyspnoea [Unknown]
  - Blood pressure increased [Unknown]
  - Off label use [Unknown]
  - Palpitations [Unknown]

NARRATIVE: CASE EVENT DATE: 20210801
